FAERS Safety Report 6573743-1 (Version None)
Quarter: 2010Q1

REPORT INFORMATION
  Report Type: 
  Country: None (occurrence: None)
  Receive Date: 20100208
  Receipt Date: 20100202
  Transmission Date: 20100710
  Serious: Yes (Hospitalization)
  Sender: FDA-Public Use
  Company Number: B0625100A

PATIENT
  Sex: Female
  Weight: 76 kg

DRUGS (5)
  1. LAPATINIB [Suspect]
     Indication: BREAST CANCER
     Dosage: 1000MG PER DAY
     Route: 048
     Dates: start: 20090420
  2. TRASTUZUMAB [Suspect]
     Indication: BREAST CANCER
     Route: 042
     Dates: start: 20090420
  3. PACLITAXEL [Suspect]
     Indication: BREAST CANCER
     Route: 042
     Dates: start: 20090420
  4. TAMOXIFEN CITRATE [Concomitant]
     Indication: BREAST CANCER
     Dosage: 20MG PER DAY
     Route: 048
     Dates: start: 20090817
  5. IMODIUM [Concomitant]
     Route: 048
     Dates: start: 20090422

REACTIONS (5)
  - CIRCULATORY COLLAPSE [None]
  - DIARRHOEA [None]
  - GASTROENTERITIS VIRAL [None]
  - RIB FRACTURE [None]
  - VOMITING [None]
